FAERS Safety Report 17292278 (Version 1)
Quarter: 2020Q1

REPORT INFORMATION
  Report Type: Report from Study
  Country: ES (occurrence: ES)
  Receive Date: 20200121
  Receipt Date: 20200121
  Transmission Date: 20200409
  Serious: Yes (Other)
  Sender: FDA-Public Use
  Company Number: ES-BAYER-2019-235834

PATIENT
  Age: 37 Year
  Sex: Female

DRUGS (1)
  1. KYLEENA [Suspect]
     Active Substance: LEVONORGESTREL
     Indication: CONTRACEPTION
     Dosage: 17.5 MCG/24HR, CONT
     Route: 015
     Dates: start: 20190923, end: 20191118

REACTIONS (3)
  - Device expulsion [Recovered/Resolved]
  - Genital haemorrhage [Recovered/Resolved]
  - Medical device pain [Recovered/Resolved]

NARRATIVE: CASE EVENT DATE: 20190923
